FAERS Safety Report 7540527-7 (Version None)
Quarter: 2011Q2

REPORT INFORMATION
  Report Type: 
  Country: None (occurrence: None)
  Receive Date: 20110610
  Receipt Date: 20110603
  Transmission Date: 20111010
  Serious: Yes (Other)
  Sender: FDA-Public Use
  Company Number: A0930964A

PATIENT
  Sex: Female
  Weight: 72 kg

DRUGS (1)
  1. SERETIDE [Suspect]
     Indication: ASTHMA
     Dosage: 1PUFF TWICE PER DAY
     Route: 055
     Dates: start: 20090101, end: 20110603

REACTIONS (2)
  - ASTHMATIC CRISIS [None]
  - EXPIRED DRUG ADMINISTERED [None]
